FAERS Safety Report 5194641-4 (Version None)
Quarter: 2006Q4

REPORT INFORMATION
  Report Type: 
  Country: None (occurrence: None)
  Receive Date: 20061222
  Receipt Date: 20061222
  Transmission Date: 20070319
  Serious: Yes (Hospitalization)
  Sender: FDA-Public Use
  Company Number: None

PATIENT
  Age: 85 Year
  Sex: Male
  Weight: 113.8529 kg

DRUGS (13)
  1. WARFARIN SODIUM [Suspect]
     Indication: DEEP VEIN THROMBOSIS
     Dosage: 5 MG  T,T,S,S PO   7.5 MG M,W,F  PO
     Route: 048
     Dates: start: 20060806, end: 20061221
  2. WARFARIN SODIUM [Suspect]
     Indication: FACTOR V LEIDEN MUTATION
     Dosage: 5 MG  T,T,S,S PO   7.5 MG M,W,F  PO
     Route: 048
     Dates: start: 20060806, end: 20061221
  3. M.V.I. [Concomitant]
  4. PANTOPRAZOLE SODIUM [Concomitant]
  5. PROPRANOLOL [Concomitant]
  6. BACTRIM DS [Concomitant]
  7. FUROSEMIDE [Concomitant]
  8. OXYBUTYNIN [Concomitant]
  9. MIRTAZAPINE [Concomitant]
  10. WARFARIN SODIUM [Concomitant]
  11. GALANTAMINE HYDROBROMIDE [Concomitant]
  12. LORATADINE [Concomitant]
  13. FINASTERIDE [Concomitant]

REACTIONS (7)
  - ABDOMINAL PAIN [None]
  - ABNORMAL FAECES [None]
  - BRONCHITIS [None]
  - DRUG TOXICITY [None]
  - INTERNATIONAL NORMALISED RATIO INCREASED [None]
  - NAUSEA [None]
  - ORAL INTAKE REDUCED [None]
